FAERS Safety Report 6702104-7 (Version None)
Quarter: 2010Q2

REPORT INFORMATION
  Report Type: 
  Country: None (occurrence: None)
  Receive Date: 20100429
  Receipt Date: 20100309
  Transmission Date: 20101027
  Serious: No
  Sender: FDA-Public Use
  Company Number: US-BAYER-201016260NA

PATIENT
  Age: 64 Year
  Sex: Male

DRUGS (4)
  1. CAMPATH [Suspect]
     Indication: CHRONIC LYMPHOCYTIC LEUKAEMIA
     Dosage: TOTAL DAILY DOSE: 3 MG
     Route: 058
     Dates: start: 20100301
  2. CAMPATH [Suspect]
     Dosage: TOTAL DAILY DOSE: 3 MG
     Route: 058
     Dates: start: 20100303
  3. CAMPATH [Suspect]
     Dosage: TOTAL DAILY DOSE: 3 MG
     Route: 058
     Dates: start: 20100305
  4. CAMPATH [Suspect]
     Dosage: TOTAL DAILY DOSE: 3 MG
     Route: 058
     Dates: start: 20100308

REACTIONS (5)
  - INJECTION SITE ERYTHEMA [None]
  - INJECTION SITE INFLAMMATION [None]
  - INJECTION SITE PAIN [None]
  - INJECTION SITE SWELLING [None]
  - INJECTION SITE WARMTH [None]
